FAERS Safety Report 13707173 (Version 1)
Quarter: 2017Q2

REPORT INFORMATION
  Report Type: Report from Study
  Country: US (occurrence: US)
  Receive Date: 20170630
  Receipt Date: 20170630
  Transmission Date: 20170830
  Serious: Yes (Hospitalization, Other)
  Sender: FDA-Public Use
  Company Number: US-PFIZER INC-2017101915

PATIENT
  Age: 69 Year
  Sex: Female

DRUGS (1)
  1. IBRANCE [Suspect]
     Active Substance: PALBOCICLIB
     Indication: BREAST CANCER
     Dosage: 125 MG, DAILY
     Route: 048
     Dates: start: 20170305, end: 20170620

REACTIONS (22)
  - Thrombocytopenia [Unknown]
  - Alopecia [Unknown]
  - Anaemia [Unknown]
  - Hypophagia [Unknown]
  - Condition aggravated [Not Recovered/Not Resolved]
  - Fatigue [Unknown]
  - Myalgia [Unknown]
  - Constipation [Recovering/Resolving]
  - Vomiting [Not Recovered/Not Resolved]
  - Diarrhoea [Not Recovered/Not Resolved]
  - Condition aggravated [Recovering/Resolving]
  - Decreased appetite [Unknown]
  - Abdominal discomfort [Not Recovered/Not Resolved]
  - Gastrointestinal motility disorder [Not Recovered/Not Resolved]
  - Therapeutic response unexpected [Recovering/Resolving]
  - Back pain [Unknown]
  - Leukopenia [Unknown]
  - Retching [Not Recovered/Not Resolved]
  - Pre-existing condition improved [Recovering/Resolving]
  - Neoplasm progression [Unknown]
  - Nausea [Not Recovered/Not Resolved]
  - Insomnia [Unknown]
